FAERS Safety Report 10730731 (Version 2)
Quarter: 2015Q1

REPORT INFORMATION
  Report Type: Spontaneous
  Country: IL (occurrence: IL)
  Receive Date: 20150122
  Receipt Date: 20150130
  Transmission Date: 20150721
  Serious: Yes (Hospitalization)
  Sender: FDA-Public Use
  Company Number: IL-PFIZER INC-2014273826

PATIENT
  Age: 79 Year
  Sex: Male

DRUGS (7)
  1. ELTROXIN [Concomitant]
     Active Substance: LEVOTHYROXINE
  2. CADEX [Concomitant]
  3. INLYTA [Suspect]
     Active Substance: AXITINIB
     Indication: RENAL CELL CARCINOMA
     Dosage: 5 MG, 2X/DAY, CONTINUOUS, CUMULATIVE DOSE ABOUT 1000
     Route: 048
     Dates: start: 20140927
  4. VASCASE PLUS [Concomitant]
  5. AMLOW [Concomitant]
  6. VASCASE [Concomitant]
  7. NORMOPRESAN [Concomitant]

REACTIONS (14)
  - Fatigue [Recovering/Resolving]
  - Blood pressure increased [Recovered/Resolved]
  - Haematoma [Not Recovered/Not Resolved]
  - Myocardial infarction [Recovering/Resolving]
  - Dry mouth [Not Recovered/Not Resolved]
  - Oropharyngeal pain [Not Recovered/Not Resolved]
  - Headache [Recovered/Resolved]
  - Weight decreased [Not Recovered/Not Resolved]
  - Nasopharyngitis [Recovered/Resolved]
  - Gingival pain [Recovered/Resolved]
  - Haemoptysis [Recovered/Resolved]
  - Cough [Recovering/Resolving]
  - Malaise [Unknown]
  - Oral pain [Recovered/Resolved]

NARRATIVE: CASE EVENT DATE: 2014
